FAERS Safety Report 24380588 (Version 2)
Quarter: 2025Q1

REPORT INFORMATION
  Report Type: Other
  Country: US (occurrence: US)
  Receive Date: 20240930
  Receipt Date: 20250117
  Transmission Date: 20250408
  Serious: No
  Sender: TRAVERE THERAPEUTICS
  Company Number: US-TRAVERE-2024TVT00912

PATIENT
  Age: 48 Year
  Sex: Female

DRUGS (1)
  1. FILSPARI [Suspect]
     Active Substance: SPARSENTAN
     Indication: IgA nephropathy
     Route: 048

REACTIONS (3)
  - COVID-19 [Unknown]
  - Pollakiuria [Unknown]
  - Creatinine urine increased [Unknown]

NARRATIVE: CASE EVENT DATE: 20240911
